FAERS Safety Report 5738745-3 (Version None)
Quarter: 2008Q2

REPORT INFORMATION
  Report Type: 
  Country: None (occurrence: None)
  Receive Date: 20080513
  Receipt Date: 20080429
  Transmission Date: 20081010
  Serious: Yes (Death)
  Sender: FDA-Public Use
  Company Number: 2008AL002833

PATIENT
  Age: 74 Year
  Sex: Female

DRUGS (3)
  1. DIGOXIN [Suspect]
     Dosage: QD; PO
     Route: 048
  2. MORPHINE [Concomitant]
  3. DARVOCET [Concomitant]

REACTIONS (2)
  - CARDIAC FAILURE CONGESTIVE [None]
  - VOMITING [None]
